FAERS Safety Report 12727569 (Version 1)
Quarter: 2016Q3

REPORT INFORMATION
  Report Type: Spontaneous
  Country: US (occurrence: US)
  Receive Date: 20160907
  Receipt Date: 20160907
  Transmission Date: 20161109
  Serious: Yes (Hospitalization)
  Sender: FDA-Public Use
  Company Number: None

PATIENT
  Age: 58 Year
  Sex: Male
  Weight: 90.7 kg

DRUGS (10)
  1. LIDOCAINE OINTMENT [Concomitant]
     Active Substance: LIDOCAINE
  2. MORPHINE [Concomitant]
     Active Substance: MORPHINE
  3. ACETAMINOPHEN. [Concomitant]
     Active Substance: ACETAMINOPHEN
  4. APIXABAN 5 MG [Suspect]
     Active Substance: APIXABAN
     Indication: PULMONARY EMBOLISM
     Route: 048
     Dates: start: 20160525
  5. ONDANSETRON [Concomitant]
     Active Substance: ONDANSETRON
  6. FAMOTIDINE. [Concomitant]
     Active Substance: FAMOTIDINE
  7. POLYETHYLENE GLYCOL [Concomitant]
     Active Substance: POLYETHYLENE GLYCOLS
  8. PROCHLORPORAZINE [Concomitant]
  9. SENNOSIDES. [Concomitant]
     Active Substance: SENNOSIDES
  10. DRONABINOL. [Concomitant]
     Active Substance: DRONABINOL

REACTIONS (2)
  - Lung neoplasm malignant [None]
  - Disease progression [None]

NARRATIVE: CASE EVENT DATE: 20160905
